FAERS Safety Report 9839553 (Version 1)
Quarter: 2014Q1

REPORT INFORMATION
  Report Type: Spontaneous
  Country: US (occurrence: US)
  Receive Date: 20140124
  Receipt Date: 20140124
  Transmission Date: 20141002
  Serious: No
  Sender: FDA-Public Use
  Company Number: US-009507513-1401USA010781

PATIENT
  Sex: Male

DRUGS (3)
  1. PROPECIA [Suspect]
     Dosage: 1 MG, QD
     Route: 048
     Dates: start: 20131018
  2. PROPECIA [Suspect]
     Dosage: HALF A TABLET
     Route: 048
     Dates: end: 2014
  3. FINASTERIDE [Concomitant]
     Dosage: UNK
     Dates: end: 2013

REACTIONS (3)
  - Hernia [Unknown]
  - Testicular pain [Unknown]
  - Wrong technique in drug usage process [Unknown]
